FAERS Safety Report 5319827-7 (Version None)
Quarter: 2007Q2

REPORT INFORMATION
  Report Type: 
  Country: None (occurrence: None)
  Receive Date: 20070509
  Receipt Date: 20070430
  Transmission Date: 20071010
  Serious: Yes (Hospitalization, Other)
  Sender: FDA-Public Use
  Company Number: PHEH2007US06663

PATIENT
  Age: 49 Year
  Sex: Female

DRUGS (3)
  1. ZELNORM [Suspect]
     Indication: IRRITABLE BOWEL SYNDROME
     Dosage: UNK, DAILY
     Dates: start: 20050101, end: 20050101
  2. ZELNORM [Suspect]
     Dosage: UNK, DAILY
     Dates: start: 20060801, end: 20060801
  3. PREVACID [Concomitant]
     Indication: GASTRIC ULCER

REACTIONS (6)
  - ABASIA [None]
  - APHASIA [None]
  - BLOOD PRESSURE INCREASED [None]
  - CHEST PAIN [None]
  - DYSPNOEA [None]
  - INTRACARDIAC THROMBUS [None]
